FAERS Safety Report 10614089 (Version 1)
Quarter: 2014Q4

REPORT INFORMATION
  Report Type: Spontaneous
  Country: BR (occurrence: BR)
  Receive Date: 20141128
  Receipt Date: 20141128
  Transmission Date: 20150529
  Serious: Yes (Death, Hospitalization, Other)
  Sender: FDA-Public Use
  Company Number: BR-ASTRAZENECA-2014SE90803

PATIENT
  Age: 87 Year
  Sex: Female

DRUGS (2)
  1. SELOPRESS [Suspect]
     Active Substance: HYDROCHLOROTHIAZIDE\METOPROLOL TARTRATE
     Indication: ARRHYTHMIA
     Route: 048
  2. PAROXETINE [Interacting]
     Active Substance: PAROXETINE\PAROXETINE HYDROCHLORIDE
     Indication: EMOTIONAL DISTRESS
     Route: 065
     Dates: start: 201411

REACTIONS (3)
  - Emotional distress [Unknown]
  - Myocardial infarction [Fatal]
  - Drug interaction [Unknown]

NARRATIVE: CASE EVENT DATE: 201411
